FAERS Safety Report 25747517 (Version 2)
Quarter: 2025Q4

REPORT INFORMATION
  Report Type: Spontaneous
  Country: JP (occurrence: JP)
  Receive Date: 20250901
  Receipt Date: 20251016
  Transmission Date: 20260118
  Serious: Yes (Hospitalization)
  Sender: ELI LILLY AND COMPANY
  Company Number: JP-ELI_LILLY_AND_COMPANY-JP202508023826

PATIENT
  Age: 68 Year
  Sex: Male
  Weight: 52.8 kg

DRUGS (8)
  1. GEMCITABINE HYDROCHLORIDE [Suspect]
     Active Substance: GEMCITABINE HYDROCHLORIDE
     Indication: Squamous cell carcinoma of lung
     Dosage: UNK
     Route: 042
     Dates: start: 20250806, end: 20250806
  2. GEMCITABINE HYDROCHLORIDE [Suspect]
     Active Substance: GEMCITABINE HYDROCHLORIDE
     Dosage: 1950 MG
     Route: 042
     Dates: start: 20250813, end: 20250826
  3. NECITUMUMAB [Suspect]
     Active Substance: NECITUMUMAB
     Indication: Squamous cell carcinoma of lung
     Dosage: UNK
     Route: 042
     Dates: start: 20250806, end: 20250806
  4. NECITUMUMAB [Suspect]
     Active Substance: NECITUMUMAB
     Dosage: 800 MG, UNKNOWN
     Route: 042
     Dates: start: 20250813, end: 20250826
  5. CISPLATIN [Suspect]
     Active Substance: CISPLATIN
     Indication: Squamous cell carcinoma of lung
     Dosage: UNK
     Route: 042
     Dates: start: 20250806, end: 20250806
  6. CISPLATIN [Suspect]
     Active Substance: CISPLATIN
     Dosage: 117 MG
     Route: 042
     Dates: start: 20250813, end: 20250826
  7. EDOXABAN TOSYLATE [Concomitant]
     Active Substance: EDOXABAN TOSYLATE
     Indication: Pulmonary embolism
     Dosage: UNK
     Dates: start: 20241113
  8. MAGNESIUM OXIDE [Concomitant]
     Active Substance: MAGNESIUM OXIDE

REACTIONS (4)
  - Neutrophil count decreased [Recovering/Resolving]
  - White blood cell count decreased [Recovering/Resolving]
  - Platelet count decreased [Recovering/Resolving]
  - Febrile neutropenia [Recovering/Resolving]

NARRATIVE: CASE EVENT DATE: 20250820
